FAERS Safety Report 13522443 (Version 1)
Quarter: 2017Q2

REPORT INFORMATION
  Report Type: Report from Study
  Country: US (occurrence: US)
  Receive Date: 20170508
  Receipt Date: 20170508
  Transmission Date: 20170830
  Serious: Yes (Other)
  Sender: FDA-Public Use
  Company Number: US-JNJFOC-20170306086

PATIENT
  Age: 31 Year
  Sex: Male
  Weight: 68.04 kg

DRUGS (6)
  1. APRISO [Concomitant]
     Active Substance: MESALAMINE
     Indication: CROHN^S DISEASE
     Route: 065
  2. COLESTIPOL [Concomitant]
     Active Substance: COLESTIPOL
     Indication: GASTROINTESTINAL DISORDER
     Route: 065
     Dates: start: 2015
  3. BUDESONIDE. [Concomitant]
     Active Substance: BUDESONIDE
     Indication: GASTROINTESTINAL DISORDER
     Route: 065
  4. DICYCLOMINE [Concomitant]
     Active Substance: DICYCLOMINE HYDROCHLORIDE
     Indication: CROHN^S DISEASE
     Route: 065
  5. STELARA [Suspect]
     Active Substance: USTEKINUMAB
     Indication: CROHN^S DISEASE
     Route: 058
     Dates: start: 20170302
  6. STELARA [Suspect]
     Active Substance: USTEKINUMAB
     Indication: CROHN^S DISEASE
     Route: 058
     Dates: start: 201611

REACTIONS (3)
  - Inappropriate schedule of drug administration [Unknown]
  - Infected fistula [Recovering/Resolving]
  - Injection site pain [Recovered/Resolved]

NARRATIVE: CASE EVENT DATE: 20170302
